FAERS Safety Report 4753140-1 (Version None)
Quarter: 2005Q3

REPORT INFORMATION
  Report Type: 
  Country: None (occurrence: None)
  Receive Date: 20050823
  Receipt Date: 20050805
  Transmission Date: 20060218
  Serious: Yes (Hospitalization)
  Sender: FDA-Public Use
  Company Number: USA040979094

PATIENT
  Age: 60 Year
  Sex: Female
  Weight: 55 kg

DRUGS (1)
  1. FORTEO [Suspect]
     Indication: OSTEOPOROSIS
     Dates: start: 20040201

REACTIONS (7)
  - BRONCHITIS [None]
  - EMPHYSEMA [None]
  - HEADACHE [None]
  - HYPOAESTHESIA [None]
  - MUSCLE SPASMS [None]
  - PAIN IN EXTREMITY [None]
  - PHARMACEUTICAL PRODUCT COMPLAINT [None]
